FAERS Safety Report 7624222-1 (Version None)
Quarter: 2011Q3

REPORT INFORMATION
  Report Type: 
  Country: None (occurrence: None)
  Receive Date: 20110720
  Receipt Date: 20110720
  Transmission Date: 20111222
  Serious: Yes (Other)
  Sender: FDA-Public Use
  Company Number: None

PATIENT
  Age: 73 Year
  Sex: Male
  Weight: 90.718 kg

DRUGS (1)
  1. ACTOS [Suspect]
     Indication: BLOOD GLUCOSE ABNORMAL
     Dosage: UNK---AVERAGE
     Dates: start: 20100322, end: 20100515

REACTIONS (5)
  - OEDEMA PERIPHERAL [None]
  - WEIGHT INCREASED [None]
  - ABDOMINAL DISTENSION [None]
  - JOINT SWELLING [None]
  - FACE OEDEMA [None]
